FAERS Safety Report 6911891-4 (Version None)
Quarter: 2010Q3

REPORT INFORMATION
  Report Type: 
  Country: None (occurrence: None)
  Receive Date: 20100806
  Receipt Date: 20071008
  Transmission Date: 20110219
  Serious: No
  Sender: FDA-Public Use
  Company Number: US-PFIZER INC-2005040082

PATIENT
  Sex: Female
  Weight: 63.5 kg

DRUGS (7)
  1. DETROL LA [Suspect]
     Indication: HYPERTONIC BLADDER
     Route: 048
     Dates: start: 20050101
  2. LEXAPRO [Concomitant]
     Route: 048
     Dates: start: 20020101
  3. LORAZEPAM [Concomitant]
     Route: 048
     Dates: start: 20020101
  4. SYNTHROID [Concomitant]
     Route: 048
     Dates: start: 19720101
  5. ANTIHYPERTENSIVES [Concomitant]
     Route: 048
     Dates: start: 19720101
  6. SEROQUEL [Concomitant]
     Route: 048
     Dates: start: 20020101
  7. ANTIDEPRESSANTS [Concomitant]
     Route: 065

REACTIONS (6)
  - DIARRHOEA [None]
  - DRUG EFFECT DECREASED [None]
  - EYE DISORDER [None]
  - MEDICATION RESIDUE [None]
  - POLLAKIURIA [None]
  - URINARY INCONTINENCE [None]
